FAERS Safety Report 15667620 (Version 2)
Quarter: 2018Q4

REPORT INFORMATION
  Report Type: Spontaneous
  Country: US (occurrence: US)
  Receive Date: 20181128
  Receipt Date: 20181204
  Transmission Date: 20190205
  Serious: No
  Sender: FDA-Public Use
  Company Number: US-PFIZER INC-2018301279

PATIENT
  Age: 46 Year
  Sex: Female

DRUGS (4)
  1. DOCETAXEL. [Suspect]
     Active Substance: DOCETAXEL
     Indication: BREAST CANCER FEMALE
     Dosage: UNK UNK, CYCLIC (NUMBER OF CYCLES: 03) EVERY THREE WEEKS
     Dates: start: 20130228, end: 20130417
  2. NEOSAR [Concomitant]
     Active Substance: CYCLOPHOSPHAMIDE
     Indication: NEOPLASM MALIGNANT
  3. CYTOXAN [Concomitant]
     Active Substance: CYCLOPHOSPHAMIDE
     Indication: NEOPLASM MALIGNANT
  4. CRESTOR [Concomitant]
     Active Substance: ROSUVASTATIN CALCIUM
     Indication: NEOPLASM MALIGNANT
     Dosage: UNK
     Dates: start: 2010

REACTIONS (5)
  - Alopecia [Not Recovered/Not Resolved]
  - Hair disorder [Not Recovered/Not Resolved]
  - Madarosis [Not Recovered/Not Resolved]
  - Hair texture abnormal [Not Recovered/Not Resolved]
  - Hair colour changes [Not Recovered/Not Resolved]

NARRATIVE: CASE EVENT DATE: 201302
